FAERS Safety Report 7160679-0 (Version None)
Quarter: 2010Q4

REPORT INFORMATION
  Report Type: 
  Country: None (occurrence: None)
  Receive Date: 20101214
  Receipt Date: 20091204
  Transmission Date: 20110411
  Serious: No
  Sender: FDA-Public Use
  Company Number: US-AMGEN-KDL378481

PATIENT

DRUGS (14)
  1. ENBREL [Suspect]
     Indication: PRODUCT USED FOR UNKNOWN INDICATION
     Dosage: 50 MG, QWK
     Route: 058
  2. ALPRAZOLAM [Concomitant]
     Dosage: .5 MG, UNK
  3. DICLOFENAC [Concomitant]
     Dosage: 75 MG, UNK
     Route: 048
  4. ACETAMINOPHEN AND HYDROCODONE BITARTRATE [Concomitant]
     Dosage: 500 MG, UNK
     Route: 048
  5. INSULIN GLARGINE [Concomitant]
     Dosage: UNK UNK, UNK
  6. ENALAPRIL [Concomitant]
     Dosage: 5 MG, UNK
     Route: 048
  7. SIMVASTATIN [Concomitant]
     Dosage: 20 MG, UNK
     Route: 048
  8. ACTONEL [Concomitant]
     Dosage: 35 MG, UNK
     Route: 048
  9. INSULIN ASPART [Concomitant]
     Dosage: 100 ML, UNK
  10. RANITIDINE HYDROCHLORIDE [Concomitant]
     Dosage: 150 MG, UNK
     Route: 048
  11. CELEXA [Concomitant]
     Dosage: 40 MG, UNK
     Route: 048
  12. FISH OIL [Concomitant]
     Dosage: UNK UNK, UNK
     Route: 048
  13. ACETYLSALICYLIC ACID [Concomitant]
     Dosage: 81 MG, UNK
     Route: 048
  14. FERROUS SULFATE [Concomitant]
     Dosage: UNK UNK, UNK
     Route: 048

REACTIONS (1)
  - DRUG INEFFECTIVE [None]
